FAERS Safety Report 5808121-3 (Version None)
Quarter: 2008Q3

REPORT INFORMATION
  Report Type: 
  Country: None (occurrence: None)
  Receive Date: 20080708
  Receipt Date: 20080625
  Transmission Date: 20090109
  Serious: Yes (Hospitalization)
  Sender: FDA-Public Use
  Company Number: 08P-062-0452845-00

PATIENT
  Age: 5 Month
  Sex: Female

DRUGS (3)
  1. SYNAGIS [Suspect]
     Indication: IMMUNISATION
     Dosage: SUBCUTANEOUS
     Route: 058
     Dates: start: 20080201, end: 20080201
  2. SYNAGIS [Suspect]
     Indication: RESPIRATORY SYNCYTIAL VIRUS INFECTION
     Dosage: SUBCUTANEOUS
     Route: 058
     Dates: start: 20080201, end: 20080201
  3. D-FLUORETTE [Concomitant]

REACTIONS (10)
  - APNOEA [None]
  - CYANOSIS [None]
  - GENERAL PHYSICAL HEALTH DETERIORATION [None]
  - HYPOCHROMIC ANAEMIA [None]
  - OXYGEN SATURATION DECREASED [None]
  - RESPIRATORY DISORDER [None]
  - RETINAL VASCULAR DISORDER [None]
  - STRIDOR [None]
  - TACHYPNOEA [None]
  - UPPER RESPIRATORY TRACT INFECTION [None]
